FAERS Safety Report 4709589-6 (Version None)
Quarter: 2005Q3

REPORT INFORMATION
  Report Type: 
  Country: None (occurrence: None)
  Receive Date: 20050707
  Receipt Date: 20050621
  Transmission Date: 20060218
  Serious: Yes (Other)
  Sender: FDA-Public Use
  Company Number: USA050599129

PATIENT
  Age: 79 Year
  Sex: Female

DRUGS (2)
  1. CYMBALTA [Suspect]
     Indication: DIABETIC NEUROPATHY
     Dosage: 30 MG
     Dates: start: 20050512, end: 20050517
  2. CYMBALTA [Suspect]
     Indication: NEUROPATHIC PAIN
     Dosage: 30 MG
     Dates: start: 20050512, end: 20050517

REACTIONS (2)
  - HAEMATEMESIS [None]
  - ULCER HAEMORRHAGE [None]
